FAERS Safety Report 17472300 (Version 2)
Quarter: 2020Q1

REPORT INFORMATION
  Report Type: Spontaneous
  Country: BR (occurrence: BR)
  Receive Date: 20200228
  Receipt Date: 20200313
  Transmission Date: 20200409
  Serious: Yes (Other)
  Sender: FDA-Public Use
  Company Number: BR-ROCHE-2553409

PATIENT
  Sex: Female

DRUGS (2)
  1. OCREVUS [Suspect]
     Active Substance: OCRELIZUMAB
     Indication: PRIMARY PROGRESSIVE MULTIPLE SCLEROSIS
     Route: 065
     Dates: start: 20191011
  2. FINGOLIMOD. [Suspect]
     Active Substance: FINGOLIMOD
     Indication: PRODUCT USED FOR UNKNOWN INDICATION
     Route: 065
     Dates: start: 201604, end: 20190813

REACTIONS (9)
  - Urinary tract infection [Recovering/Resolving]
  - Hepatic enzyme abnormal [Unknown]
  - Movement disorder [Unknown]
  - Activated partial thromboplastin time abnormal [Unknown]
  - Prothrombin time abnormal [Unknown]
  - Fall [Unknown]
  - Monoparesis [Recovering/Resolving]
  - Flushing [Recovered/Resolved]
  - Gait disturbance [Recovering/Resolving]

NARRATIVE: CASE EVENT DATE: 20191031
